FAERS Safety Report 6338045-7 (Version None)
Quarter: 2009Q3

REPORT INFORMATION
  Report Type: 
  Country: None (occurrence: None)
  Receive Date: 20090902
  Receipt Date: 20090820
  Transmission Date: 20100115
  Serious: Yes (Other)
  Sender: FDA-Public Use
  Company Number: LK-PFIZER INC-2009256746

PATIENT
  Age: 53 Year

DRUGS (2)
  1. SERTRALINE HCL [Suspect]
     Indication: DEPRESSION
     Dosage: 50 MG, UNK
  2. HERBAL PREPARATION [Interacting]
     Indication: BACK PAIN
     Dosage: UNK
     Dates: start: 20060501, end: 20070501

REACTIONS (3)
  - DISEASE RECURRENCE [None]
  - DRUG INTERACTION [None]
  - SUICIDE ATTEMPT [None]
